FAERS Safety Report 7761542-4 (Version None)
Quarter: 2011Q3

REPORT INFORMATION
  Report Type: 
  Country: None (occurrence: None)
  Receive Date: 20110920
  Receipt Date: 20110913
  Transmission Date: 20111222
  Serious: Yes (Death)
  Sender: FDA-Public Use
  Company Number: US-CELGENEUS-163-21880-11091541

PATIENT
  Sex: Male

DRUGS (10)
  1. ULORIC [Concomitant]
     Route: 065
  2. VITAMIN D [Concomitant]
     Route: 065
  3. FISH OIL [Concomitant]
     Route: 065
  4. FOLIC ACID [Concomitant]
     Route: 065
  5. OMEPRAZOLE [Concomitant]
     Route: 065
  6. ZOCOR [Concomitant]
     Route: 065
  7. REVLIMID [Suspect]
     Dosage: 5 MILLIGRAM
     Route: 048
     Dates: start: 20110801
  8. SPIRONOLACTONE [Concomitant]
     Route: 065
  9. REVLIMID [Suspect]
     Dosage: 10 MILLIGRAM
     Route: 048
     Dates: start: 20110401
  10. LASIX [Concomitant]
     Route: 065

REACTIONS (1)
  - DEATH [None]
